FAERS Safety Report 5468880-9 (Version None)
Quarter: 2007Q3

REPORT INFORMATION
  Report Type: 
  Country: None (occurrence: None)
  Receive Date: 20070926
  Receipt Date: 20070918
  Transmission Date: 20080115
  Serious: Yes (Hospitalization)
  Sender: FDA-Public Use
  Company Number: US-GENENTECH-248029

PATIENT
  Age: 75 Year
  Sex: Female

DRUGS (2)
  1. HERCEPTIN [Suspect]
     Indication: BREAST CANCER
  2. CHEMOTHERAPY NOS [Concomitant]
     Indication: BREAST CANCER

REACTIONS (1)
  - STEVENS-JOHNSON SYNDROME [None]
